FAERS Safety Report 6003771-6 (Version None)
Quarter: 2008Q4

REPORT INFORMATION
  Report Type: 
  Country: None (occurrence: None)
  Receive Date: 20081216
  Receipt Date: 20081205
  Transmission Date: 20090506
  Serious: Yes (Other)
  Sender: FDA-Public Use
  Company Number: PHHY2008CA31306

PATIENT
  Sex: Female

DRUGS (2)
  1. CLOZARIL [Suspect]
     Dosage: 280 MG/DAY
     Route: 048
     Dates: start: 20080118
  2. EPIVAL [Concomitant]
     Dosage: 1500 MG/DAY

REACTIONS (2)
  - DRUG LEVEL DECREASED [None]
  - ELECTRIC SHOCK [None]
